FAERS Safety Report 9165373 (Version 1)
Quarter: 2013Q1

REPORT INFORMATION
  Report Type: Spontaneous
  Country: US (occurrence: None)
  Receive Date: 20130314
  Receipt Date: 20130314
  Transmission Date: 20140127
  Serious: Yes (Hospitalization)
  Sender: FDA-Public Use
  Company Number: None

PATIENT
  Age: 56 Year
  Sex: Male
  Weight: 88.5 kg

DRUGS (2)
  1. HYDROXYCHLOROQUINE [Suspect]
     Indication: RENAL CANCER METASTATIC
     Dosage: IN 2 DIVIDED DOSES
     Dates: end: 20130216
  2. ALDESLEUKIN [Suspect]
     Indication: RENAL CANCER METASTATIC
     Dates: start: 20130205, end: 20130208

REACTIONS (7)
  - Pancreatitis acute [None]
  - Fatigue [None]
  - Dyspnoea [None]
  - Productive cough [None]
  - Sputum discoloured [None]
  - Increased viscosity of bronchial secretion [None]
  - Pneumonia [None]
